FAERS Safety Report 9644242 (Version 2)
Quarter: 2013Q4

REPORT INFORMATION
  Report Type: Report from Study
  Country: US (occurrence: US)
  Receive Date: 20131024
  Receipt Date: 20131028
  Transmission Date: 20140711
  Serious: Yes (Other)
  Sender: FDA-Public Use
  Company Number: PHEH2013US022141

PATIENT
  Age: 77 Year
  Sex: Female

DRUGS (12)
  1. RECLAST [Suspect]
     Dosage: UNK
     Route: 042
     Dates: start: 20111017
  2. RECLAST [Suspect]
     Dosage: UNK
     Route: 042
     Dates: start: 2013
  3. MAGNESIUM OXIDE [Concomitant]
  4. CALCIUM [Concomitant]
  5. VITAMIN D [Concomitant]
  6. TOPROL [Concomitant]
  7. EVISTA [Concomitant]
  8. LASIX [Concomitant]
  9. HYDROCODONE [Concomitant]
  10. MOBIC [Concomitant]
  11. POTASSIUM [Concomitant]
  12. ALLEGRA [Concomitant]
     Dosage: UNK

REACTIONS (2)
  - Fall [Unknown]
  - Ankle fracture [Recovered/Resolved]
